FAERS Safety Report 7050972-4 (Version None)
Quarter: 2010Q4

REPORT INFORMATION
  Report Type: 
  Country: None (occurrence: None)
  Receive Date: 20101019
  Receipt Date: 20101011
  Transmission Date: 20110411
  Serious: Yes (Other)
  Sender: FDA-Public Use
  Company Number: AU-US-EMD SERONO, INC.-7019241

PATIENT
  Age: 50 Year
  Sex: Female

DRUGS (3)
  1. REBIF [Suspect]
     Indication: MULTIPLE SCLEROSIS
     Route: 058
     Dates: start: 19950101
  2. HYTRIN [Concomitant]
     Indication: BLADDER DISORDER
  3. KEFLEX [Concomitant]
     Indication: PROPHYLAXIS URINARY TRACT INFECTION

REACTIONS (2)
  - GASTROINTESTINAL CARCINOMA [None]
  - METASTASES TO LYMPH NODES [None]
